FAERS Safety Report 8345863-2 (Version None)
Quarter: 2012Q2

REPORT INFORMATION
  Report Type: 
  Country: None (occurrence: None)
  Receive Date: 20120509
  Receipt Date: 20120430
  Transmission Date: 20120825
  Serious: No
  Sender: FDA-Public Use
  Company Number: US-BIOGENIDEC-2012BI015136

PATIENT
  Age: 42 Year
  Sex: Male

DRUGS (4)
  1. GILENYA [Concomitant]
     Indication: MULTIPLE SCLEROSIS
  2. AVONEX [Concomitant]
     Route: 030
     Dates: start: 20091101
  3. AVONEX [Concomitant]
     Indication: MULTIPLE SCLEROSIS
     Route: 030
     Dates: start: 20081101
  4. TYSABRI [Suspect]
     Indication: MULTIPLE SCLEROSIS
     Route: 042
     Dates: start: 20120308

REACTIONS (6)
  - DEHYDRATION [None]
  - INFLUENZA LIKE ILLNESS [None]
  - FATIGUE [None]
  - ASTHENIA [None]
  - PAIN [None]
  - MUSCLE SPASMS [None]
